FAERS Safety Report 4610362-8 (Version None)
Quarter: 2005Q1

REPORT INFORMATION
  Report Type: 
  Country: None (occurrence: None)
  Receive Date: 20050314
  Receipt Date: 20050302
  Transmission Date: 20050727
  Serious: Yes (Death, Disabling)
  Sender: FDA-Public Use
  Company Number: 002#4#2005-00061

PATIENT
  Age: 42 Year
  Sex: Male

DRUGS (5)
  1. CHLORPHENIRAMINE MALEATE AND PHENYLPROPANOLAMINE HCL [Suspect]
     Dosage: ORAL
     Route: 048
  2. ALKA-SELTZER-PLUS-COLD [Suspect]
     Dosage: ORAL
     Route: 048
  3. ENALAPRIL [Concomitant]
  4. CLARITIN [Concomitant]
  5. SUDAFED 12 HOUR [Concomitant]

REACTIONS (8)
  - BLOOD PRESSURE INCREASED [None]
  - BRAIN STEM HAEMORRHAGE [None]
  - HAEMODIALYSIS [None]
  - HYDROCEPHALUS [None]
  - INTRACRANIAL ANEURYSM [None]
  - RENAL FAILURE [None]
  - RENAL FAILURE CHRONIC [None]
  - SOMNOLENCE [None]
